FAERS Safety Report 21087126 (Version 1)
Quarter: 2022Q3

REPORT INFORMATION
  Report Type: Report from Study
  Country: PA (occurrence: PA)
  Receive Date: 20220715
  Receipt Date: 20220715
  Transmission Date: 20221027
  Serious: Yes (Other)
  Sender: FDA-Public Use
  Company Number: PA-NOVARTISPH-NVSC2022PA160163

PATIENT
  Sex: Female

DRUGS (1)
  1. KISQALI [Suspect]
     Active Substance: RIBOCICLIB
     Indication: Breast cancer metastatic
     Dosage: 600 MG, QD (3 (600MG))
     Route: 048
     Dates: start: 202205

REACTIONS (3)
  - Metastases to abdominal cavity [Unknown]
  - Metastases to pelvis [Unknown]
  - Metastases to thorax [Unknown]
